FAERS Safety Report 7645589-4 (Version None)
Quarter: 2011Q3

REPORT INFORMATION
  Report Type: 
  Country: None (occurrence: None)
  Receive Date: 20110729
  Receipt Date: 20110718
  Transmission Date: 20111222
  Serious: No
  Sender: FDA-Public Use
  Company Number: US-PFIZER INC-2011162540

PATIENT
  Sex: Female
  Weight: 51.247 kg

DRUGS (2)
  1. DIAZEPAM [Concomitant]
     Dosage: 5 MG, UNK
  2. ADVIL LIQUI-GELS [Suspect]
     Indication: HEADACHE
     Dosage: 200 MG, 2X/DAY
     Route: 048
     Dates: start: 20110715

REACTIONS (1)
  - BLISTER [None]
